FAERS Safety Report 6314290-1 (Version None)
Quarter: 2009Q3

REPORT INFORMATION
  Report Type: 
  Country: None (occurrence: None)
  Receive Date: 20090819
  Receipt Date: 20081114
  Transmission Date: 20100115
  Serious: Yes (Life-Threatening, Hospitalization, Other)
  Sender: FDA-Public Use
  Company Number: GB-RANBAXY-2008RR-16264

PATIENT
  Age: 66 Year
  Sex: Female

DRUGS (6)
  1. SIMVASTATIN [Suspect]
     Indication: HYPERCHOLESTEROLAEMIA
     Dosage: 10 MG, QD
     Route: 048
     Dates: start: 19980612, end: 20080702
  2. LEVOTHYROXINE SODIUM [Concomitant]
     Indication: HYPOTHYROIDISM
     Dosage: 75 UG, QD
     Route: 048
     Dates: start: 20080620, end: 20080626
  3. LEVOTHYROXINE SODIUM [Concomitant]
     Dosage: 100 UG, QD
  4. PRIMIDONE [Concomitant]
     Indication: PETIT MAL EPILEPSY
     Dosage: 750 MG, TID
     Route: 048
     Dates: start: 20000101
  5. RAMIPRIL [Concomitant]
     Indication: HYPERTENSION
     Dosage: 5 MG, UNK
     Route: 048
     Dates: start: 20080501
  6. TOPIRAMATE [Concomitant]
     Indication: PETIT MAL EPILEPSY
     Dosage: 75 MG, QD
     Route: 048

REACTIONS (5)
  - LUPUS-LIKE SYNDROME [None]
  - MALAISE [None]
  - MUSCULAR WEAKNESS [None]
  - PNEUMONITIS [None]
  - RASH GENERALISED [None]
